FAERS Safety Report 6580796-3 (Version None)
Quarter: 2010Q1

REPORT INFORMATION
  Report Type: 
  Country: None (occurrence: None)
  Receive Date: 20100213
  Receipt Date: 20100201
  Transmission Date: 20100710
  Serious: Yes (Hospitalization)
  Sender: FDA-Public Use
  Company Number: US-ELI_LILLY_AND_COMPANY-US201002001625

PATIENT
  Sex: Female

DRUGS (8)
  1. FORTEO [Suspect]
     Indication: OSTEOPOROSIS
     Dosage: 20 UG, DAILY (1/D)
     Route: 065
     Dates: start: 20091016
  2. DIOVAN [Concomitant]
     Dosage: 160 MG, UNKNOWN
     Route: 065
  3. NAMENDA [Concomitant]
     Dosage: 10 MG, UNKNOWN
     Route: 065
  4. SINVASTATINA [Concomitant]
     Dosage: 20 MG, UNKNOWN
     Route: 065
  5. ARICEPT [Concomitant]
     Dosage: 10 MG, UNKNOWN
     Route: 065
  6. GABAPENTIN [Concomitant]
     Dosage: 300 MG, UNKNOWN
     Route: 065
  7. OXYCONTIN [Concomitant]
     Dosage: 20 MG, 2/D
     Route: 065
  8. LANTUS [Concomitant]
     Dosage: 25 IU, 2/D
     Route: 065

REACTIONS (1)
  - FRACTURE [None]
